FAERS Safety Report 5893114-0 (Version None)
Quarter: 2008Q3

REPORT INFORMATION
  Report Type: 
  Country: None (occurrence: None)
  Receive Date: 20080922
  Receipt Date: 20080922
  Transmission Date: 20090109
  Serious: Yes (Other)
  Sender: FDA-Public Use
  Company Number: None

PATIENT
  Sex: Female
  Weight: 76.6579 kg

DRUGS (5)
  1. EFFEXOR XR [Suspect]
     Indication: DEPRESSION
     Dosage: 225 MG QD PO
     Route: 048
     Dates: start: 20061217, end: 20080920
  2. CLONAZEPAM [Concomitant]
  3. LEVOTHYROXINE SODIUM [Concomitant]
  4. IBUPROFEN [Concomitant]
  5. FERROUS SULFATE [Concomitant]

REACTIONS (4)
  - DRUG DEPENDENCE [None]
  - DRUG INEFFECTIVE [None]
  - SUICIDAL IDEATION [None]
  - WITHDRAWAL SYNDROME [None]
